FAERS Safety Report 18431187 (Version 7)
Quarter: 2021Q1

REPORT INFORMATION
  Report Type: Report from Study
  Country: AR (occurrence: AR)
  Receive Date: 20201027
  Receipt Date: 20210210
  Transmission Date: 20210419
  Serious: Yes (Death, Hospitalization, Other)
  Sender: FDA-Public Use
  Company Number: AR-TAKEDA-2020TUS043288

PATIENT
  Age: 26 Year
  Sex: Female

DRUGS (2)
  1. PONATINIB [Suspect]
     Active Substance: PONATINIB
     Indication: CHRONIC MYELOID LEUKAEMIA
     Dosage: 45 MILLIGRAM, QD
     Route: 048
     Dates: start: 20200828, end: 20201209
  2. PONATINIB [Suspect]
     Active Substance: PONATINIB
     Dosage: 45 MILLIGRAM, QD
     Route: 048
     Dates: start: 20201221

REACTIONS (6)
  - Feeling abnormal [Unknown]
  - Pyrexia [Unknown]
  - Blast crisis in myelogenous leukaemia [Unknown]
  - Mastitis [Unknown]
  - Death [Fatal]
  - Blood test abnormal [Unknown]

NARRATIVE: CASE EVENT DATE: 20201011
